FAERS Safety Report 8561223-3 (Version None)
Quarter: 2012Q3

REPORT INFORMATION
  Report Type: 
  Country: None (occurrence: None)
  Receive Date: 20120802
  Receipt Date: 20120720
  Transmission Date: 20120928
  Serious: Yes (Disabling, Other)
  Sender: FDA-Public Use
  Company Number: US-009507513-1205USA02846

PATIENT

DRUGS (2)
  1. CALCIUM (UNSPECIFIED) (+) VITAMIN D (UNSPECIFIED) [Concomitant]
     Dosage: 1200MG + 800MG DAILY
  2. FOSAMAX [Suspect]
     Indication: OSTEOPOROSIS
     Dosage: 70 MG, QW
     Route: 048
     Dates: start: 20070510

REACTIONS (7)
  - FALL [None]
  - CERVICAL DYSPLASIA [None]
  - ATROPHIC VULVOVAGINITIS [None]
  - DIVERTICULITIS [None]
  - HAEMORRHOIDS [None]
  - RASH [None]
  - FEMUR FRACTURE [None]
